FAERS Safety Report 14703167 (Version 1)
Quarter: 2018Q2

REPORT INFORMATION
  Report Type: Report from Study
  Country: CN (occurrence: CN)
  Receive Date: 20180402
  Receipt Date: 20180402
  Transmission Date: 20180711
  Serious: Yes (Other)
  Sender: FDA-Public Use
  Company Number: CN-ROCHE-2099421

PATIENT

DRUGS (2)
  1. RITUXIMAB. [Suspect]
     Active Substance: RITUXIMAB
     Dosage: DAY 15 OF CYCLE 1?DAYS 1 AND 15 FOR CYCLE 2?DAY 1 OF CYCLES 3-6
     Route: 042
  2. RITUXIMAB. [Suspect]
     Active Substance: RITUXIMAB
     Indication: CHRONIC LYMPHOCYTIC LEUKAEMIA
     Dosage: CYCLE 1
     Route: 042

REACTIONS (7)
  - Lung infection [Unknown]
  - White blood cell count decreased [Unknown]
  - Neutropenia [Unknown]
  - Platelet count decreased [Unknown]
  - Neutrophil count decreased [Unknown]
  - Pyrexia [Unknown]
  - Upper respiratory tract infection [Unknown]
